FAERS Safety Report 22280582 (Version 2)
Quarter: 2023Q2

REPORT INFORMATION
  Report Type: Spontaneous
  Country: BE (occurrence: BE)
  Receive Date: 20230503
  Receipt Date: 20230526
  Transmission Date: 20230721
  Serious: Yes (Other)
  Sender: FDA-Public Use
  Company Number: BE-VERTEX PHARMACEUTICALS-2023-006261

PATIENT
  Age: 30 Year
  Sex: Female

DRUGS (2)
  1. ELEXACAFTOR\IVACAFTOR\TEZACAFTOR [Suspect]
     Active Substance: ELEXACAFTOR\IVACAFTOR\TEZACAFTOR
     Indication: Cystic fibrosis
     Dosage: 2 TABS
     Route: 048
     Dates: start: 20220920
  2. KALYDECO [Suspect]
     Active Substance: IVACAFTOR
     Indication: Cystic fibrosis
     Dosage: 1 TAB
     Route: 048
     Dates: start: 20220920

REACTIONS (1)
  - Cholangiocarcinoma [Unknown]

NARRATIVE: CASE EVENT DATE: 20230402
